FAERS Safety Report 7883170-2 (Version None)
Quarter: 2011Q4

REPORT INFORMATION
  Report Type: 
  Country: None (occurrence: None)
  Receive Date: 20111031
  Receipt Date: 20111019
  Transmission Date: 20120403
  Serious: Yes (Other)
  Sender: FDA-Public Use
  Company Number: 2011P1009543

PATIENT
  Age: 35 Year
  Sex: Male
  Weight: 79.3795 kg

DRUGS (2)
  1. AMPHETAMINE AND DEXTROAMPHETAMINE SALTS [Suspect]
     Indication: ATTENTION DEFICIT/HYPERACTIVITY DISORDER
     Dosage: 20 MG;AM 10 MG;PM
     Dates: start: 20111005, end: 20111017
  2. AMPHETAMINE AND DEXTROAMPHETAMINE SALTS [Suspect]
     Indication: ATTENTION DEFICIT/HYPERACTIVITY DISORDER
     Dosage: 20 MG;AM 10 MG;PM
     Dates: start: 20111005, end: 20111017

REACTIONS (9)
  - HALLUCINATION [None]
  - AGITATION [None]
  - PRODUCT SUBSTITUTION ISSUE [None]
  - UNEVALUABLE EVENT [None]
  - MEMORY IMPAIRMENT [None]
  - DRY MOUTH [None]
  - FEELING ABNORMAL [None]
  - ANGER [None]
  - FATIGUE [None]
